FAERS Safety Report 17611862 (Version 1)
Quarter: 2020Q2

REPORT INFORMATION
  Report Type: Spontaneous
  Country: US (occurrence: US)
  Receive Date: 20200401
  Receipt Date: 20200401
  Transmission Date: 20200713
  Serious: No
  Sender: FDA-Public Use
  Company Number: US-TEVA-2020-US-1213870

PATIENT
  Age: 65 Year
  Sex: Female

DRUGS (1)
  1. LETROZOLE. [Suspect]
     Active Substance: LETROZOLE
     Indication: NEOPLASM PROPHYLAXIS
     Dosage: 2.5 MG SINCE 7 YEARS
     Route: 065

REACTIONS (1)
  - Back pain [Not Recovered/Not Resolved]
